FAERS Safety Report 6824139-6 (Version None)
Quarter: 2010Q3

REPORT INFORMATION
  Report Type: 
  Country: None (occurrence: None)
  Receive Date: 20100708
  Receipt Date: 20061003
  Transmission Date: 20110219
  Serious: No
  Sender: FDA-Public Use
  Company Number: US-PFIZER INC-2006121862

PATIENT
  Sex: Male
  Weight: 88.45 kg

DRUGS (3)
  1. CHANTIX [Suspect]
     Indication: EX-TOBACCO USER
     Route: 048
     Dates: start: 20060925, end: 20061002
  2. LEVOFLOXACIN [Suspect]
     Indication: PNEUMONIA
     Dates: start: 20060901, end: 20060928
  3. DURA-VENT [Concomitant]

REACTIONS (3)
  - ABDOMINAL PAIN UPPER [None]
  - CONSTIPATION [None]
  - DIARRHOEA [None]
